FAERS Safety Report 4604705-9 (Version None)
Quarter: 2005Q1

REPORT INFORMATION
  Report Type: 
  Country: None (occurrence: None)
  Receive Date: 20050224
  Receipt Date: 20041217
  Transmission Date: 20050727
  Serious: No
  Sender: FDA-Public Use
  Company Number: SU-2004-002945

PATIENT
  Age: 64 Year
  Sex: Male
  Weight: 113.3993 kg

DRUGS (9)
  1. BENICAR [Suspect]
     Indication: HYPERTENSION
     Dosage: 20 MG QD PO
     Route: 048
     Dates: start: 20041101
  2. AMIODARONE [Concomitant]
  3. LASIX [Concomitant]
  4. SPIRONOLACTONE [Concomitant]
  5. DIGOXIN [Concomitant]
  6. COUMADIN [Concomitant]
  7. CORAGOXINE [Concomitant]
  8. ALLOPURINOL [Concomitant]
  9. PREVACID [Concomitant]

REACTIONS (2)
  - BLOOD UREA INCREASED [None]
  - FEELING COLD [None]
